FAERS Safety Report 8804426 (Version 1)
Quarter: 2012Q4

REPORT INFORMATION
  Report Type: 
  Country: DE (occurrence: DE)
  Receive Date: 20120923
  Receipt Date: 20120923
  Transmission Date: 20130627
  Serious: Yes (Hospitalization)
  Sender: FDA-Public Use
  Company Number: DE-009507513-1209DEU005854

PATIENT
  Age: 65 Year
  Sex: Female
  Weight: 87 kg

DRUGS (5)
  1. JANUMET [Suspect]
     Dosage: 2 DF, qd (1Df dosage form, 2 in 1 day)
     Route: 048
  2. ZOCOR 10MG [Concomitant]
     Dosage: 40 mg, qd
     Route: 048
  3. NEXIUM [Concomitant]
     Dosage: 40 mg, qd
     Route: 048
  4. ATACAND PLUS [Concomitant]
     Dosage: 12.5 mg, UNK
     Route: 048
  5. METOPROLOL [Concomitant]
     Dosage: 50 mg, bid

REACTIONS (2)
  - Renal failure acute [Recovered/Resolved]
  - Lactic acidosis [Recovered/Resolved]
